FAERS Safety Report 9169815 (Version 1)
Quarter: 2013Q1

REPORT INFORMATION
  Report Type: Spontaneous
  Country: IT (occurrence: IT)
  Receive Date: 20130319
  Receipt Date: 20130319
  Transmission Date: 20140127
  Serious: Yes (Life-Threatening)
  Sender: FDA-Public Use
  Company Number: IT-009507513-1303ITA006476

PATIENT
  Sex: 0

DRUGS (1)
  1. ESMERON [Suspect]

REACTIONS (2)
  - Respiratory arrest [Unknown]
  - Accidental exposure to product [Unknown]
